FAERS Safety Report 8605749 (Version 3)
Quarter: 2012Q4

REPORT INFORMATION
  Report Type: 
  Country: GB (occurrence: GB)
  Receive Date: 20120608
  Receipt Date: 20121012
  Transmission Date: 20130627
  Serious: Yes (Hospitalization, Other)
  Sender: FDA-Public Use
  Company Number: GB-TEVA-340755ISR

PATIENT
  Age: 81 Year
  Sex: Male
  Weight: 68 kg

DRUGS (16)
  1. AZILECT [Suspect]
     Indication: PARKINSON^S DISEASE
     Dosage: 1 Milligram Daily; every morning
     Route: 048
     Dates: start: 20120404, end: 20120424
  2. AZILECT [Interacting]
     Dosage: 1 Milligram Daily; every morning
     Route: 048
     Dates: start: 20120511
  3. PHENYLEPHRINE [Interacting]
     Indication: INDUCTION OF ANAESTHESIA
     Route: 042
     Dates: start: 20120420, end: 20120420
  4. PROPOFOL [Concomitant]
     Indication: INDUCTION OF ANAESTHESIA
     Route: 042
     Dates: start: 20120420
  5. FENTANYL [Concomitant]
     Indication: INDUCTION OF ANAESTHESIA
     Route: 042
     Dates: start: 20120420
  6. CISATRACURIUM [Concomitant]
     Indication: INDUCTION OF ANAESTHESIA
     Dosage: And further 8mg dose 20/4/2012 after increase in blood pressure.
Also given 9/5/2012, 18mg.
     Route: 042
     Dates: start: 20120420
  7. STALEVO 100/25/200MG [Concomitant]
     Indication: PARKINSON^S DISEASE
     Dosage: 4 Dosage forms Daily; 100 mg levodopa, 25 mg carbidopa and 200 mg entacapone
     Route: 042
     Dates: start: 20120420
  8. CO-BENELDOPA 12.5/50 [Concomitant]
     Indication: PARKINSON^S DISEASE
     Dosage: benserazide 12.5 mg, levodopa 50 mg
     Route: 042
     Dates: start: 20120420
  9. AMLODIPINE [Concomitant]
  10. ATORVASTATIN [Concomitant]
  11. FORCEVAL [Concomitant]
  12. BISOPROLOL [Concomitant]
  13. ISOSORBIDE MONONITRATE [Concomitant]
  14. LANSOPRAZOLE [Concomitant]
  15. LISINOPRIL [Concomitant]
  16. ASPIRIN [Concomitant]

REACTIONS (5)
  - Hypertensive crisis [Recovered/Resolved]
  - Blood pressure increased [Recovered/Resolved]
  - Inhibitory drug interaction [Unknown]
  - Anaesthetic complication [Unknown]
  - Convulsion [Unknown]
